FAERS Safety Report 20885479 (Version 1)
Quarter: 2022Q2

REPORT INFORMATION
  Report Type: Spontaneous
  Country: US (occurrence: US)
  Receive Date: 20220527
  Receipt Date: 20220527
  Transmission Date: 20220721
  Serious: Yes (Hospitalization)
  Sender: FDA-Public Use
  Company Number: US-BRISTOL-MYERS SQUIBB COMPANY-2022-045941

PATIENT
  Age: 87 Year
  Sex: Male

DRUGS (2)
  1. ELIQUIS [Suspect]
     Active Substance: APIXABAN
     Indication: Embolism venous
     Dosage: FOR SEVEN DAYS
     Route: 048
     Dates: start: 20220515
  2. ELIQUIS [Suspect]
     Active Substance: APIXABAN
     Dosage: STARTING ON DAY 8
     Route: 048

REACTIONS (2)
  - Epistaxis [Unknown]
  - Product dose omission issue [Unknown]
